FAERS Safety Report 16841708 (Version 1)
Quarter: 2019Q3

REPORT INFORMATION
  Report Type: Report from Study
  Country: US (occurrence: US)
  Receive Date: 20190923
  Receipt Date: 20190923
  Transmission Date: 20191005
  Serious: No
  Sender: FDA-Public Use
  Company Number: PHEH2019US038875

PATIENT
  Age: 59 Year
  Sex: Female

DRUGS (1)
  1. GLATOPA [Suspect]
     Active Substance: GLATIRAMER ACETATE
     Indication: PRODUCT USED FOR UNKNOWN INDICATION
     Dosage: 40 MG, TIW
     Route: 058
     Dates: start: 201908, end: 201909

REACTIONS (3)
  - Device leakage [Unknown]
  - Injection site erythema [Unknown]
  - Injection site mass [Unknown]

NARRATIVE: CASE EVENT DATE: 201908
